FAERS Safety Report 17227682 (Version 1)
Quarter: 2020Q1

REPORT INFORMATION
  Report Type: Spontaneous
  Country: GB (occurrence: GB)
  Receive Date: 20200103
  Receipt Date: 20200103
  Transmission Date: 20200409
  Serious: Yes (Disabling, Other)
  Sender: FDA-Public Use
  Company Number: GB-AUROBINDO-AUR-APL-2019-109433

PATIENT
  Age: 21 Year
  Sex: Male
  Weight: 62 kg

DRUGS (1)
  1. FINASTERIDE. [Suspect]
     Active Substance: FINASTERIDE
     Indication: ANDROGENETIC ALOPECIA
     Dosage: 1 DOSAGE FORM, ONCE A DAY
     Route: 048
     Dates: start: 20180410, end: 20190519

REACTIONS (7)
  - Libido decreased [Unknown]
  - Insomnia [Unknown]
  - Tinnitus [Unknown]
  - Fatigue [Unknown]
  - Depression suicidal [Recovered/Resolved with Sequelae]
  - Amnesia [Unknown]
  - Erectile dysfunction [Unknown]
